FAERS Safety Report 15260989 (Version 1)
Quarter: 2018Q3

REPORT INFORMATION
  Report Type: Spontaneous
  Country: DE (occurrence: DE)
  Receive Date: 20180809
  Receipt Date: 20180809
  Transmission Date: 20181010
  Serious: Yes (Hospitalization, Other)
  Sender: FDA-Public Use
  Company Number: DE-VIIV HEALTHCARE LIMITED-DE2018GSK096783

PATIENT
  Age: 0 Day
  Sex: Female
  Weight: 3.2 kg

DRUGS (1)
  1. RETROVIR [Suspect]
     Active Substance: ZIDOVUDINE
     Indication: PRODUCT USED FOR UNKNOWN INDICATION
     Dosage: UNK
     Dates: start: 20130625, end: 20130629

REACTIONS (2)
  - Accidental overdose [Unknown]
  - Sepsis neonatal [Recovered/Resolved]

NARRATIVE: CASE EVENT DATE: 20130625
